FAERS Safety Report 8304702-6 (Version None)
Quarter: 2012Q2

REPORT INFORMATION
  Report Type: 
  Country: None (occurrence: None)
  Receive Date: 20120423
  Receipt Date: 20120419
  Transmission Date: 20120825
  Serious: Yes (Hospitalization)
  Sender: FDA-Public Use
  Company Number: PL-ROCHE-1050974

PATIENT
  Sex: Female
  Weight: 42 kg

DRUGS (9)
  1. AMLOZEK [Concomitant]
     Indication: HYPERTENSION
     Route: 048
  2. ATORVASTATIN CALCIUM [Concomitant]
     Indication: DYSLIPIDAEMIA
     Route: 048
  3. BONIVA [Suspect]
     Indication: OSTEOPOROSIS
     Route: 042
     Dates: start: 20110912, end: 20120313
  4. POLPRAZOL [Concomitant]
     Indication: PEPTIC ULCER
  5. FORMOTEROL FUMARATE [Concomitant]
  6. SPIRIVA [Concomitant]
  7. FLUTICASONE PROPIONATE [Concomitant]
     Indication: CHRONIC OBSTRUCTIVE PULMONARY DISEASE
  8. BISOPROLOL FUMARATE [Concomitant]
     Indication: HYPERTENSION
     Route: 048
  9. PLAVIX [Concomitant]

REACTIONS (1)
  - ADMINISTRATION SITE REACTION [None]
